FAERS Safety Report 5865337-8 (Version None)
Quarter: 2008Q3

REPORT INFORMATION
  Report Type: 
  Country: None (occurrence: None)
  Receive Date: 20080829
  Receipt Date: 20080826
  Transmission Date: 20090109
  Serious: Yes (Hospitalization)
  Sender: FDA-Public Use
  Company Number: FR-ASTRAZENECA-2008CG01267

PATIENT
  Age: 14745 Day
  Sex: Male

DRUGS (9)
  1. MOPRAL [Suspect]
     Route: 042
     Dates: start: 20080505, end: 20080604
  2. MODOPAR [Suspect]
     Route: 048
     Dates: start: 20080523, end: 20080604
  3. TRIFLUCAN [Suspect]
     Route: 048
     Dates: start: 20080503, end: 20080604
  4. KEPPRA [Suspect]
     Route: 048
     Dates: end: 20080604
  5. ATARAX [Concomitant]
  6. MALOCIDE [Concomitant]
     Indication: CEREBRAL TOXOPLASMOSIS
  7. KIVEXA [Concomitant]
  8. PREZISTA [Concomitant]
  9. ADIAZINE [Concomitant]
     Indication: CEREBRAL TOXOPLASMOSIS

REACTIONS (1)
  - BONE MARROW FAILURE [None]
